FAERS Safety Report 6709799-2 (Version None)
Quarter: 2010Q2

REPORT INFORMATION
  Report Type: 
  Country: None (occurrence: None)
  Receive Date: 20100503
  Receipt Date: 20100503
  Transmission Date: 20101027
  Serious: Yes (Other)
  Sender: FDA-Public Use
  Company Number: None

PATIENT
  Age: 3 Month
  Sex: Male
  Weight: 6.804 kg

DRUGS (2)
  1. CONCENTRATED TYLENOL INFANT DROPS [Suspect]
     Indication: PYREXIA
     Dosage: 0.8 ML EVERY 4 HRS. PO
     Route: 048
     Dates: start: 20100303, end: 20100303
  2. VASELINE [Concomitant]

REACTIONS (2)
  - PRODUCT QUALITY ISSUE [None]
  - RASH [None]
